FAERS Safety Report 13050605 (Version 1)
Quarter: 2016Q4

REPORT INFORMATION
  Report Type: Spontaneous
  Country: US (occurrence: US)
  Receive Date: 20161221
  Receipt Date: 20161221
  Transmission Date: 20170207
  Serious: No
  Sender: FDA-Public Use
  Company Number: US-NOVOPROD-504356

PATIENT
  Age: 81 Year
  Sex: Female

DRUGS (1)
  1. LEVEMIR [Suspect]
     Active Substance: INSULIN DETEMIR
     Indication: TYPE 2 DIABETES MELLITUS
     Dosage: 27.5 UNITS
     Route: 058
     Dates: start: 2014

REACTIONS (4)
  - Bronchitis [Not Recovered/Not Resolved]
  - Blood glucose decreased [Unknown]
  - Product quality issue [Unknown]
  - Therapy cessation [Unknown]
